FAERS Safety Report 5933172-8 (Version None)
Quarter: 2008Q4

REPORT INFORMATION
  Report Type: 
  Country: None (occurrence: None)
  Receive Date: 20081023
  Receipt Date: 20060606
  Transmission Date: 20090506
  Serious: Yes (Death)
  Sender: FDA-Public Use
  Company Number: 2006AL002142

PATIENT
  Age: 69 Year
  Sex: Female

DRUGS (9)
  1. IBUPROFEN TABLETS [Suspect]
     Indication: OSTEOARTHRITIS
     Dosage: 400 MG; BID; PO
     Route: 048
     Dates: start: 20060405
  2. SPIRONOLACTONE [Concomitant]
  3. COZAAR [Concomitant]
  4. METFORMIN HCL [Concomitant]
  5. BISOPROLOL FUMARATE [Concomitant]
  6. ROSIGLITAZONE [Concomitant]
  7. ASPIRIN [Concomitant]
  8. ROSUVASTATIN [Concomitant]
  9. EZETIMIDE [Concomitant]

REACTIONS (2)
  - RENAL FAILURE ACUTE [None]
  - RHABDOMYOLYSIS [None]
